FAERS Safety Report 9269864 (Version 1)
Quarter: 2013Q2

REPORT INFORMATION
  Report Type: Spontaneous
  Country: US (occurrence: US)
  Receive Date: 20130503
  Receipt Date: 20130503
  Transmission Date: 20140414
  Serious: Yes (Other)
  Sender: FDA-Public Use
  Company Number: US-SANOFI-AVENTIS-2013SA044036

PATIENT
  Age: 55 Year
  Sex: Female

DRUGS (2)
  1. ALLEGRA-D, 24 HR [Suspect]
     Indication: HYPERSENSITIVITY
     Dosage: 180/240 MG
     Route: 048
  2. IRON [Concomitant]

REACTIONS (1)
  - Gastrointestinal carcinoma [Unknown]
